FAERS Safety Report 22197609 (Version 1)
Quarter: 2023Q2

REPORT INFORMATION
  Report Type: Spontaneous
  Country: US (occurrence: US)
  Receive Date: 20230411
  Receipt Date: 20230411
  Transmission Date: 20230722
  Serious: No
  Sender: FDA-Public Use
  Company Number: US-PFIZER INC-202300145732

PATIENT
  Age: 49 Year
  Sex: Female
  Weight: 132.45 kg

DRUGS (1)
  1. NURTEC ODT [Suspect]
     Active Substance: RIMEGEPANT SULFATE
     Indication: Headache
     Dosage: UNK, ALTERNATE DAY (75-85.7)

REACTIONS (1)
  - Headache [Unknown]
